FAERS Safety Report 6130889-X (Version None)
Quarter: 2009Q1

REPORT INFORMATION
  Report Type: 
  Country: None (occurrence: None)
  Receive Date: 20090320
  Receipt Date: 20090306
  Transmission Date: 20090719
  Serious: Yes (Death)
  Sender: FDA-Public Use
  Company Number: THYM-1000886

PATIENT
  Age: 25 Year
  Sex: Male
  Weight: 61 kg

DRUGS (8)
  1. THYMOGLOBULIN [Suspect]
     Indication: APLASTIC ANAEMIA
     Dosage: 200 MG, QD, INTRAVENOUS
     Route: 042
     Dates: start: 20081211, end: 20081215
  2. CYCLOSPORINE [Concomitant]
  3. PLASMA [Concomitant]
  4. METHYLPREDNISOLONE 16MG TAB [Concomitant]
  5. FILGRASTIM (FILGRASTIM) [Concomitant]
  6. METHYLPREDNISOLONE [Concomitant]
  7. PREDNISOLONE [Concomitant]
  8. PREDNISOLONE [Concomitant]

REACTIONS (20)
  - ABDOMINAL PAIN UPPER [None]
  - ACIDOSIS [None]
  - BLISTER [None]
  - CHOLECYSTITIS [None]
  - CONTINUOUS HAEMODIAFILTRATION [None]
  - DYSHIDROSIS [None]
  - ERYTHEMA [None]
  - HAEMORRHAGE [None]
  - HAEMORRHAGIC DIATHESIS [None]
  - HEPATIC FAILURE [None]
  - HEPATITIS FULMINANT [None]
  - HERPES VIRUS INFECTION [None]
  - HERPES ZOSTER DISSEMINATED [None]
  - HYPOTENSION [None]
  - ILEUS PARALYTIC [None]
  - LIVER FUNCTION TEST ABNORMAL [None]
  - MULTI-ORGAN FAILURE [None]
  - MYOSITIS [None]
  - RESPIRATORY DEPRESSION [None]
  - URINE OUTPUT DECREASED [None]
